FAERS Safety Report 9707883 (Version 4)
Quarter: 2014Q3

REPORT INFORMATION
  Report Type: Spontaneous
  Country: US (occurrence: US)
  Receive Date: 20131125
  Receipt Date: 20140813
  Transmission Date: 20150326
  Serious: Yes (Other)
  Sender: FDA-Public Use
  Company Number: US-AMGEN-USASP2013082431

PATIENT
  Sex: Male

DRUGS (4)
  1. PRENATAL DHA [Concomitant]
     Dosage: UNK UNK, QD
     Route: 064
     Dates: start: 201305
  2. VITAMIN D                          /00107901/ [Concomitant]
     Active Substance: ERGOCALCIFEROL
     Dosage: 1 DROPPER FULL, ONCE A DAY
     Route: 048
     Dates: start: 20140424
  3. PRENATAL VITAMINS                  /07499601/ [Concomitant]
     Dosage: UNK UNK, QD
     Route: 064
     Dates: start: 201305
  4. ENBREL [Suspect]
     Active Substance: ETANERCEPT
     Indication: EXPOSURE DURING BREAST FEEDING
     Dosage: 50 MG, QWK
     Route: 063
     Dates: start: 201303

REACTIONS (2)
  - Hypospadias [Unknown]
  - Eczema [Recovering/Resolving]
